FAERS Safety Report 5259711-0 (Version None)
Quarter: 2007Q1

REPORT INFORMATION
  Report Type: 
  Country: None (occurrence: None)
  Receive Date: 20070307
  Receipt Date: 20070307
  Transmission Date: 20070707
  Serious: Yes (Life-Threatening)
  Sender: FDA-Public Use
  Company Number: None

PATIENT
  Age: 80 Year
  Sex: Male
  Weight: 73.9363 kg

DRUGS (5)
  1. RITUXAN [Suspect]
     Indication: LYMPHOMA
     Dosage: 723MG IN NS, TOTAL VOL- 650ML RATE = 100MG/HR IV
     Route: 042
     Dates: start: 20061031, end: 20061031
  2. CYTOXAN [Concomitant]
  3. ADRIAMYCIN PFS [Concomitant]
  4. VINCRISTINE [Concomitant]
  5. PREDNISONE [Concomitant]

REACTIONS (9)
  - ATRIOVENTRICULAR BLOCK [None]
  - CHEST PAIN [None]
  - CHILLS [None]
  - CONDUCTION DISORDER [None]
  - ELECTROCARDIOGRAM P WAVE ABNORMAL [None]
  - HYPOTENSION [None]
  - INFUSION RELATED REACTION [None]
  - PYREXIA [None]
  - SYNCOPE VASOVAGAL [None]
